FAERS Safety Report 13403562 (Version 2)
Quarter: 2017Q2

REPORT INFORMATION
  Report Type: Spontaneous
  Country: JP (occurrence: JP)
  Receive Date: 20170405
  Receipt Date: 20170410
  Transmission Date: 20170830
  Serious: Yes (Hospitalization, Other)
  Sender: FDA-Public Use
  Company Number: JP-PFIZER INC-2015163793

PATIENT
  Age: 77 Year
  Sex: Female
  Weight: 36.6 kg

DRUGS (4)
  1. FOLIC ACID. [Concomitant]
     Active Substance: FOLIC ACID
     Dosage: 5 MG, WEEKLY
     Dates: start: 201003
  2. METHOTREXATE SODIUM. [Suspect]
     Active Substance: METHOTREXATE SODIUM
     Indication: RHEUMATOID ARTHRITIS
     Dosage: 6 MG, WEEKLY
     Route: 048
     Dates: start: 201003
  3. PREDNISOLONE. [Concomitant]
     Active Substance: PREDNISOLONE
     Indication: RHEUMATOID ARTHRITIS
     Dosage: 5 MG, DAILY
     Route: 048
     Dates: start: 201008
  4. METHOTREXATE SODIUM. [Suspect]
     Active Substance: METHOTREXATE SODIUM
     Dosage: 8 MG, WEEKLY
     Route: 048
     Dates: start: 201101

REACTIONS (6)
  - Bone marrow failure [Unknown]
  - Pancytopenia [Recovering/Resolving]
  - Stomatitis [Recovering/Resolving]
  - Skin erosion [Recovering/Resolving]
  - Decreased appetite [Unknown]
  - Oral mucosa erosion [Recovering/Resolving]

NARRATIVE: CASE EVENT DATE: 2013
